FAERS Safety Report 6153727-8 (Version None)
Quarter: 2009Q2

REPORT INFORMATION
  Report Type: 
  Country: None (occurrence: None)
  Receive Date: 20090410
  Receipt Date: 20090401
  Transmission Date: 20091009
  Serious: Yes (Hospitalization, Disabling, Other)
  Sender: FDA-Public Use
  Company Number: 2009-00507

PATIENT
  Age: 62 Year
  Sex: Female
  Weight: 102.5 kg

DRUGS (23)
  1. VELCADE [Suspect]
     Indication: MULTIPLE MYELOMA
     Dosage: 1.3 MG/M2, INTRAVENOUS
     Route: 042
     Dates: start: 20090109, end: 20090122
  2. DOXIL [Suspect]
     Indication: MULTIPLE MYELOMA
     Dosage: INTRAVENOUS
     Route: 042
     Dates: start: 20090109, end: 20090113
  3. OXYCODONE HCL [Concomitant]
  4. OXYCONTIN [Concomitant]
  5. BENICAR/HYDROCHLOROTHIAZIDE (BENSERAZIDE HYDROCHLORIDE) [Concomitant]
  6. CYMBALTA [Concomitant]
  7. ZOCOR [Concomitant]
  8. SYNTHROID [Concomitant]
  9. MAGNESIUM OXIDE (MAGNESIUM OXIDE) [Concomitant]
  10. SENNA (SENNA) [Concomitant]
  11. FLEXERIL [Concomitant]
  12. METFORMIN HCL [Concomitant]
  13. NEXIUM [Concomitant]
  14. NEURONTIN [Concomitant]
  15. DEXAMETHASONE 4MG TAB [Concomitant]
  16. POTASSIUM (POTASSIUM) [Concomitant]
  17. COMPAZINE [Concomitant]
  18. KYTRIL [Concomitant]
  19. LASIX [Concomitant]
  20. ALOXI [Concomitant]
  21. ARANESP [Concomitant]
  22. BENADRYL [Concomitant]
  23. ACETAMINOPHEN [Concomitant]

REACTIONS (30)
  - ABASIA [None]
  - ALBUMIN GLOBULIN RATIO ABNORMAL [None]
  - ASTHENIA [None]
  - ATELECTASIS [None]
  - BLOOD ALKALINE PHOSPHATASE INCREASED [None]
  - BLOOD CREATINE INCREASED [None]
  - BLOOD POTASSIUM INCREASED [None]
  - BLOOD PRESSURE DIASTOLIC DECREASED [None]
  - BLOOD SODIUM DECREASED [None]
  - BONE MARROW FAILURE [None]
  - CARDIOMEGALY [None]
  - CONDITION AGGRAVATED [None]
  - FATIGUE [None]
  - HYPERTENSION [None]
  - HYPOGAMMAGLOBULINAEMIA [None]
  - LEFT VENTRICULAR HYPERTROPHY [None]
  - NAUSEA [None]
  - OEDEMA [None]
  - OEDEMA PERIPHERAL [None]
  - PLEURAL EFFUSION [None]
  - PNEUMONIA [None]
  - SPINAL COMPRESSION FRACTURE [None]
  - THROMBOCYTOPENIA [None]
  - TREATMENT NONCOMPLIANCE [None]
  - TRICUSPID VALVE INCOMPETENCE [None]
  - URINARY INCONTINENCE [None]
  - URINARY RETENTION [None]
  - VENOUS OCCLUSION [None]
  - VOMITING [None]
  - WEIGHT INCREASED [None]
